FAERS Safety Report 5096857-4 (Version None)
Quarter: 2006Q3

REPORT INFORMATION
  Report Type: 
  Country: None (occurrence: None)
  Receive Date: 20060831
  Receipt Date: 20060831
  Transmission Date: 20061208
  Serious: Yes (Hospitalization)
  Sender: FDA-Public Use
  Company Number: None

PATIENT
  Sex: Male
  Weight: 74 kg

DRUGS (2)
  1. CYTARABINE [Suspect]
     Dosage: SEE IMAGE
  2. DAUNORUBICIN HCL [Suspect]
     Dosage: SEE IMAGE

REACTIONS (13)
  - AUTOIMMUNE DISORDER [None]
  - BLOOD BILIRUBIN INCREASED [None]
  - BLOOD CALCIUM DECREASED [None]
  - BLOOD POTASSIUM DECREASED [None]
  - CALCIUM IONISED DECREASED [None]
  - DIABETES INSIPIDUS [None]
  - DIARRHOEA [None]
  - HAEMOLYSIS [None]
  - HAEMOLYTIC ANAEMIA [None]
  - HYPERNATRAEMIA [None]
  - METABOLIC ENCEPHALOPATHY [None]
  - PYREXIA [None]
  - TOXIC INDUCED ENCEPHALOPATHY [None]
